FAERS Safety Report 18087873 (Version 1)
Quarter: 2020Q3

REPORT INFORMATION
  Report Type: Report from Study
  Country: AU (occurrence: AU)
  Receive Date: 20200729
  Receipt Date: 20200729
  Transmission Date: 20201103
  Serious: Yes (Other)
  Sender: FDA-Public Use
  Company Number: AU-MYLANLABS-2020M1068021

PATIENT
  Age: 37 Year
  Sex: Female

DRUGS (1)
  1. DIAZEPAM. [Suspect]
     Active Substance: DIAZEPAM
     Indication: REACTIVE PSYCHOSIS
     Route: 065

REACTIONS (4)
  - Condition aggravated [Unknown]
  - Reactive psychosis [Unknown]
  - Fatigue [Unknown]
  - Weight increased [Unknown]
